FAERS Safety Report 7063236-X (Version None)
Quarter: 2010Q4

REPORT INFORMATION
  Report Type: 
  Country: None (occurrence: None)
  Receive Date: 20101026
  Receipt Date: 20100701
  Transmission Date: 20110411
  Serious: No
  Sender: FDA-Public Use
  Company Number: US-PFIZER INC-2010083172

PATIENT
  Sex: Female
  Weight: 60.3 kg

DRUGS (3)
  1. LIPITOR [Suspect]
     Indication: BLOOD CHOLESTEROL INCREASED
     Dosage: 40 MG, 1X/DAY
     Route: 048
  2. METOPROLOL [Concomitant]
     Indication: HYPERTENSION
     Dosage: UNK
  3. METOPROLOL [Concomitant]
     Indication: HEART RATE IRREGULAR

REACTIONS (2)
  - DYSGEUSIA [None]
  - NAUSEA [None]
